FAERS Safety Report 4434769-7 (Version None)
Quarter: 2004Q3

REPORT INFORMATION
  Report Type: 
  Country: None (occurrence: None)
  Receive Date: 20040726
  Receipt Date: 20040220
  Transmission Date: 20050211
  Serious: No
  Sender: FDA-Public Use
  Company Number: USA030127207

PATIENT
  Age: 59 Year
  Sex: Female
  Weight: 82 kg

DRUGS (13)
  1. FORTEO [Suspect]
     Indication: OSTEOPOROSIS
     Dosage: 20 UG DASY
     Dates: start: 20030109
  2. ANAFRANIL [Concomitant]
  3. CELEBREX [Concomitant]
  4. CELEXA [Concomitant]
  5. FOSAMAX [Concomitant]
  6. CLONOPIN (CLONAZEPAM) [Concomitant]
  7. MIACALCIN [Concomitant]
  8. ORTHO-EST [Concomitant]
  9. SYNTHROID [Concomitant]
  10. TOPROL-XL [Concomitant]
  11. DIAZIDE (GLICLAZIDE) [Concomitant]
  12. CHOLINE MAGNESIUM TRISALICYLATE [Concomitant]
  13. LEXAPRO [Concomitant]

REACTIONS (14)
  - ABNORMAL FAECES [None]
  - ACTIVITIES OF DAILY LIVING IMPAIRED [None]
  - ASTHENIA [None]
  - BALANCE DISORDER [None]
  - CHEST DISCOMFORT [None]
  - CLUMSINESS [None]
  - DYSGRAPHIA [None]
  - FAECAL INCONTINENCE [None]
  - FAECES DISCOLOURED [None]
  - LOOSE STOOLS [None]
  - MIDDLE INSOMNIA [None]
  - MUSCLE CRAMP [None]
  - PAIN IN EXTREMITY [None]
  - VIRAL INFECTION [None]
